FAERS Safety Report 6535576-1 (Version None)
Quarter: 2010Q1

REPORT INFORMATION
  Report Type: 
  Country: None (occurrence: None)
  Receive Date: 20100105
  Receipt Date: 20091221
  Transmission Date: 20100710
  Serious: Yes (Hospitalization, Other)
  Sender: FDA-Public Use
  Company Number: AUR-APL-2009-01626

PATIENT
  Age: 4 Year
  Sex: Male

DRUGS (12)
  1. ONDANSETRON [Suspect]
  2. GRANISETRON [Suspect]
  3. ZOSYN [Suspect]
  4. BACTRIM [Suspect]
  5. DAUNORUBICIN HCL [Suspect]
     Indication: ACUTE LYMPHOCYTIC LEUKAEMIA
     Dates: start: 20090424
  6. METHOTREXATE [Suspect]
     Indication: ACUTE LYMPHOCYTIC LEUKAEMIA
     Dates: start: 20090424
  7. NEURONTIN [Suspect]
  8. METHYLPREDNISOLONE [Suspect]
     Indication: ACUTE LYMPHOCYTIC LEUKAEMIA
     Route: 042
     Dates: start: 20090424
  9. HYDROCORTISONE [Suspect]
     Indication: ACUTE LYMPHOCYTIC LEUKAEMIA
     Dates: start: 20090424
  10. CYTARABINE [Suspect]
     Indication: ACUTE LYMPHOCYTIC LEUKAEMIA
     Dates: start: 20090424
  11. VINCRISTINE [Suspect]
     Indication: ACUTE LYMPHOCYTIC LEUKAEMIA
     Dates: start: 20090424
  12. SPRYCEL [Suspect]
     Indication: ACUTE LYMPHOCYTIC LEUKAEMIA
     Dates: start: 20090424

REACTIONS (5)
  - HEPATIC STEATOSIS [None]
  - HEPATITIS ACUTE [None]
  - HEPATITIS INFECTIOUS [None]
  - HEPATOMEGALY [None]
  - LYMPHOPENIA [None]
